FAERS Safety Report 13197377 (Version 1)
Quarter: 2017Q1

REPORT INFORMATION
  Report Type: Spontaneous
  Country: BR (occurrence: BR)
  Receive Date: 20170208
  Receipt Date: 20170208
  Transmission Date: 20170428
  Serious: Yes (Life-Threatening, Other)
  Sender: FDA-Public Use
  Company Number: BR-TAKEDA-2017MPI001008

PATIENT

DRUGS (1)
  1. VELCADE [Suspect]
     Active Substance: BORTEZOMIB
     Indication: PRODUCT USED FOR UNKNOWN INDICATION
     Dosage: UNK
     Route: 065

REACTIONS (28)
  - Suicidal ideation [Unknown]
  - Confusional state [Unknown]
  - Dysaesthesia [Unknown]
  - Neuropathy peripheral [Unknown]
  - Chills [Unknown]
  - Cranial nerve disorder [Unknown]
  - Coma [Unknown]
  - Spinal cord compression [Unknown]
  - Seizure [Unknown]
  - Dysarthria [Unknown]
  - Fatigue [Unknown]
  - Dizziness [Unknown]
  - Autonomic nervous system imbalance [Unknown]
  - Restlessness [Unknown]
  - Ataxia [Unknown]
  - Motor dysfunction [Unknown]
  - Mental status changes [Unknown]
  - Insomnia [Unknown]
  - Psychotic disorder [Unknown]
  - Vertigo [Unknown]
  - Headache [Unknown]
  - Malaise [Unknown]
  - Neuralgia [Unknown]
  - Anxiety [Unknown]
  - Cerebral haemorrhage [Unknown]
  - Paralysis [Unknown]
  - Paraesthesia [Unknown]
  - Cerebral disorder [Unknown]
